FAERS Safety Report 9832056 (Version 1)
Quarter: 2014Q1

REPORT INFORMATION
  Report Type: Spontaneous
  Country: PL (occurrence: PL)
  Receive Date: 20140121
  Receipt Date: 20140121
  Transmission Date: 20141002
  Serious: Yes (Hospitalization)
  Sender: FDA-Public Use
  Company Number: PL-PFIZER INC-2014017592

PATIENT
  Age: 41 Year
  Sex: Female

DRUGS (4)
  1. PANTOPRAZOLE [Suspect]
     Dosage: 20 MG, DAILY
     Route: 065
  2. KETOPROFEN [Concomitant]
     Indication: PAIN
     Dosage: 200 MG, DAILY
  3. TRAMADOL/PARACETAMOL [Concomitant]
     Indication: PAIN
     Dosage: 4 DF, DAILY
     Route: 065
  4. TOLPERIZON [Concomitant]
     Dosage: 100 MG, DAILY

REACTIONS (3)
  - Duodenitis [Recovered/Resolved]
  - Intestinal villi atrophy [Recovered/Resolved]
  - Drug ineffective [Unknown]
